FAERS Safety Report 21564110 (Version 1)
Quarter: 2022Q4

REPORT INFORMATION
  Report Type: Spontaneous
  Country: US (occurrence: US)
  Receive Date: 20221108
  Receipt Date: 20221108
  Transmission Date: 20230113
  Serious: No
  Sender: FDA-Public Use
  Company Number: US-ALVOGEN-2022-ALVOGEN-120404

PATIENT
  Age: 63 Year
  Sex: Male

DRUGS (5)
  1. METHYLPHENIDATE HYDROCHLORIDE [Suspect]
     Active Substance: METHYLPHENIDATE HYDROCHLORIDE
     Indication: Parkinson^s disease
  2. CARBIDOPA\LEVODOPA [Suspect]
     Active Substance: CARBIDOPA\LEVODOPA
     Indication: Parkinson^s disease
  3. AMANTADINE [Suspect]
     Active Substance: AMANTADINE
     Indication: Parkinson^s disease
  4. CLONAZEPAM [Suspect]
     Active Substance: CLONAZEPAM
     Indication: Parkinson^s disease
  5. MELATONIN [Suspect]
     Active Substance: MELATONIN
     Indication: Parkinson^s disease

REACTIONS (4)
  - Personality change [Unknown]
  - Affect lability [Unknown]
  - Anxiety [Unknown]
  - Dyskinesia [Unknown]
